FAERS Safety Report 23482317 (Version 2)
Quarter: 2024Q1

REPORT INFORMATION
  Report Type: Spontaneous
  Country: US (occurrence: US)
  Receive Date: 20240205
  Receipt Date: 20240314
  Transmission Date: 20240410
  Serious: No
  Sender: FDA-Public Use
  Company Number: US-PFIZER INC-PV202400015825

PATIENT
  Age: 29 Year
  Sex: Female

DRUGS (1)
  1. XELJANZ XR [Suspect]
     Active Substance: TOFACITINIB CITRATE
     Dosage: 11 MG

REACTIONS (11)
  - Headache [Unknown]
  - Product dose omission issue [Unknown]
  - Migraine [Unknown]
  - Nausea [Unknown]
  - Vision blurred [Unknown]
  - Bronchitis [Unknown]
  - Illness [Unknown]
  - Cough [Unknown]
  - Arthralgia [Unknown]
  - Joint swelling [Unknown]
  - Sensitivity to weather change [Unknown]
